FAERS Safety Report 9668847 (Version 2)
Quarter: 2013Q4

REPORT INFORMATION
  Report Type: Spontaneous
  Country: FR (occurrence: FR)
  Receive Date: 20131105
  Receipt Date: 20131111
  Transmission Date: 20140711
  Serious: Yes (Hospitalization)
  Sender: FDA-Public Use
  Company Number: PHHY2013FR125268

PATIENT
  Age: 63 Year
  Sex: Male

DRUGS (5)
  1. ONBREZ [Suspect]
     Indication: CHRONIC OBSTRUCTIVE PULMONARY DISEASE
     Dosage: 150 UG, QD
     Dates: start: 201209
  2. ONBREZ [Suspect]
     Dosage: 150 UG, QD
     Dates: start: 201304
  3. ONBREZ [Suspect]
     Dosage: 150 UG, QD
     Dates: start: 20131002
  4. MONONAXY [Concomitant]
  5. SOLUPRED [Concomitant]

REACTIONS (4)
  - Myocardial infarction [Unknown]
  - Cardiac arrest [Unknown]
  - Hypertension [Recovered/Resolved]
  - Hyperglycaemia [Unknown]
